FAERS Safety Report 6401202-5 (Version None)
Quarter: 2009Q4

REPORT INFORMATION
  Report Type: 
  Country: None (occurrence: None)
  Receive Date: 20091015
  Receipt Date: 20091008
  Transmission Date: 20100525
  Serious: Yes (Life-Threatening, Hospitalization, Other)
  Sender: FDA-Public Use
  Company Number: PL-CELGENEUS-129-50794-09071250

PATIENT
  Sex: Female

DRUGS (2)
  1. VIDAZA [Suspect]
     Route: 058
     Dates: start: 20090623, end: 20090629
  2. METYPRED [Concomitant]
     Indication: DRUG USE FOR UNKNOWN INDICATION
     Route: 048
     Dates: start: 20090401

REACTIONS (4)
  - BRONCHITIS [None]
  - INJECTION SITE PAIN [None]
  - INJECTION SITE RASH [None]
  - THROMBOCYTOPENIA [None]
